FAERS Safety Report 12673517 (Version 2)
Quarter: 2016Q3

REPORT INFORMATION
  Report Type: Spontaneous
  Country: JP (occurrence: JP)
  Receive Date: 20160822
  Receipt Date: 20160908
  Transmission Date: 20161109
  Serious: Yes (Hospitalization, Other)
  Sender: FDA-Public Use
  Company Number: JP-ELI_LILLY_AND_COMPANY-JP201608009152

PATIENT
  Age: 72 Year
  Sex: Male

DRUGS (4)
  1. FAMOTIDINE. [Concomitant]
     Active Substance: FAMOTIDINE
  2. SHAKUYAKUKANZOTO [Concomitant]
     Active Substance: HERBALS
  3. FORTEO [Suspect]
     Active Substance: TERIPARATIDE
     Indication: PRODUCT USED FOR UNKNOWN INDICATION
     Dosage: UNK
     Route: 058
     Dates: start: 201603, end: 20160730
  4. CELECOX [Concomitant]
     Active Substance: CELECOXIB

REACTIONS (4)
  - Cerebral infarction [Unknown]
  - Renal failure [Not Recovered/Not Resolved]
  - Dehydration [Unknown]
  - Ureteric obstruction [Unknown]

NARRATIVE: CASE EVENT DATE: 20160730
